FAERS Safety Report 4277817-X (Version None)
Quarter: 2004Q1

REPORT INFORMATION
  Report Type: 
  Country: None (occurrence: None)
  Receive Date: 20040121
  Receipt Date: 20040113
  Transmission Date: 20041129
  Serious: Yes (Death)
  Sender: FDA-Public Use
  Company Number: JP-JNJFOC-20040101865

PATIENT
  Age: 80 Year
  Sex: Male

DRUGS (5)
  1. FENTANYL [Suspect]
     Indication: CANCER PAIN
     Dosage: SEE IMAGE
     Route: 062
     Dates: start: 20031223, end: 20031225
  2. FENTANYL [Suspect]
     Indication: CANCER PAIN
     Dosage: SEE IMAGE
     Route: 062
     Dates: start: 20031225, end: 20040106
  3. CEFOPERAZONE SODIUM-SULBACTAM SODIUM SULPERAZON [Concomitant]
  4. HALOPERIDOL [Concomitant]
  5. MIDAZOLAM (MIDAZOLAM) [Concomitant]

REACTIONS (2)
  - BLOOD ALKALINE PHOSPHATASE INCREASED [None]
  - COLON CANCER [None]
